FAERS Safety Report 13301189 (Version 2)
Quarter: 2019Q2

REPORT INFORMATION
  Report Type: Spontaneous
  Country: US (occurrence: US)
  Receive Date: 20170307
  Receipt Date: 20190501
  Transmission Date: 20190711
  Serious: Yes (Other)
  Sender: FDA-Public Use
  Company Number: US-PROCTER_AND_GAMBLE-GS17024475

PATIENT
  Age: 75 Year
  Sex: Male

DRUGS (1)
  1. OXYMETAZOLINE NASAL PREPARATION [Suspect]
     Active Substance: OXYMETAZOLINE
     Indication: SINUSITIS
     Dosage: UNK, DAILY
     Route: 045

REACTIONS (12)
  - Eosinophilic granulomatosis with polyangiitis [Recovered/Resolved]
  - Headache [Recovered/Resolved]
  - Hemiparesis [Recovered/Resolved]
  - CSF protein increased [Recovered/Resolved]
  - Meningeal disorder [Recovered/Resolved]
  - Cerebral ischaemia [Recovered/Resolved]
  - Vasculitis necrotising [Recovered/Resolved]
  - Hypoaesthesia [Recovered/Resolved]
  - Cerebral haemorrhage [Recovered/Resolved]
  - Cerebral infarction [Recovered/Resolved]
  - CSF lymphocyte count increased [Recovered/Resolved]
  - CSF cell count increased [Recovered/Resolved]
